FAERS Safety Report 22245264 (Version 2)
Quarter: 2023Q2

REPORT INFORMATION
  Report Type: Spontaneous
  Country: AU (occurrence: AU)
  Receive Date: 20230424
  Receipt Date: 20230522
  Transmission Date: 20230721
  Serious: Yes (Hospitalization, Other)
  Sender: FDA-Public Use
  Company Number: AU-MYLANLABS-2023M1041656

PATIENT
  Age: 22 Year
  Sex: Male

DRUGS (7)
  1. CLOZARIL [Suspect]
     Active Substance: CLOZAPINE
     Indication: Schizophrenia
     Dosage: 125 MILLIGRAM, QD
     Route: 048
     Dates: start: 20230329
  2. CLOZARIL [Suspect]
     Active Substance: CLOZAPINE
     Dosage: 125 MILLIGRAM, QD
     Route: 048
     Dates: start: 20230330, end: 20230414
  3. CLOZARIL [Suspect]
     Active Substance: CLOZAPINE
     Dosage: UNK
     Route: 048
     Dates: start: 20230329, end: 20230502
  4. ABILIFY [Concomitant]
     Active Substance: ARIPIPRAZOLE
     Dosage: 20 MILLIGRAM
     Route: 065
  5. PROPRANOLOL HYDROCHLORIDE [Concomitant]
     Active Substance: PROPRANOLOL HYDROCHLORIDE
     Dosage: 10 MILLIGRAM, QD (NOCTE)
     Route: 065
  6. VORTIOXETINE [Concomitant]
     Active Substance: VORTIOXETINE
     Dosage: 20 MILLIGRAM
     Route: 065
  7. MELATONIN [Concomitant]
     Active Substance: MELATONIN
     Dosage: 2 MILLIGRAM
     Route: 065

REACTIONS (17)
  - Myopericarditis [Unknown]
  - C-reactive protein increased [Recovering/Resolving]
  - Troponin increased [Recovered/Resolved]
  - Viral infection [Unknown]
  - Malaise [Unknown]
  - Myalgia [Unknown]
  - Anion gap increased [Recovered/Resolved]
  - Blood bicarbonate decreased [Unknown]
  - Electrocardiogram abnormal [Unknown]
  - Pyrexia [Unknown]
  - Oropharyngeal pain [Unknown]
  - Headache [Unknown]
  - Fatigue [Unknown]
  - Lymphocyte count decreased [Recovering/Resolving]
  - Mean platelet volume decreased [Not Recovered/Not Resolved]
  - Platelet count decreased [Recovered/Resolved]
  - Therapy interrupted [Unknown]

NARRATIVE: CASE EVENT DATE: 20230411
